FAERS Safety Report 24387399 (Version 1)
Quarter: 2024Q4

REPORT INFORMATION
  Report Type: Spontaneous
  Country: FR (occurrence: FR)
  Receive Date: 20241002
  Receipt Date: 20241002
  Transmission Date: 20250115
  Serious: Yes (Hospitalization, Other)
  Sender: GILEAD
  Company Number: None

PATIENT
  Age: 76 Year
  Sex: Female
  Weight: 73 kg

DRUGS (1)
  1. TRODELVY [Suspect]
     Active Substance: SACITUZUMAB GOVITECAN-HZIY
     Indication: Triple negative breast cancer
     Dosage: 730 MG (CYCLICAL)
     Route: 065
     Dates: start: 20240226, end: 20240524

REACTIONS (3)
  - Small intestinal obstruction [Recovered/Resolved]
  - Terminal ileitis [Recovered/Resolved]
  - Congenital aplasia [Recovered/Resolved]

NARRATIVE: CASE EVENT DATE: 20240505
